FAERS Safety Report 7298512-9 (Version None)
Quarter: 2011Q1

REPORT INFORMATION
  Report Type: 
  Country: None (occurrence: None)
  Receive Date: 20110214
  Receipt Date: 20110214
  Transmission Date: 20110831
  Serious: Yes (Other)
  Sender: FDA-Public Use
  Company Number: None

PATIENT
  Age: 68 Year
  Sex: Male
  Weight: 83.9154 kg

DRUGS (2)
  1. AMLODIPINE BESYLATE [Suspect]
     Indication: HYPERTENSION
     Dosage: 1 ONLY ORAL
     Route: 048
     Dates: start: 20101101
  2. TRAMADOL HCL [Suspect]
     Indication: PROCEDURAL PAIN
     Dosage: 1 ONLY ORAL
     Route: 048
     Dates: start: 20101201

REACTIONS (3)
  - OEDEMA MOUTH [None]
  - HALLUCINATION [None]
  - LIP SWELLING [None]
